FAERS Safety Report 10558851 (Version 12)
Quarter: 2016Q1

REPORT INFORMATION
  Report Type: Report from Study
  Country: NZ (occurrence: NZ)
  Receive Date: 20141101
  Receipt Date: 20160122
  Transmission Date: 20160525
  Serious: Yes (Other)
  Sender: FDA-Public Use
  Company Number: NZ-ABBVIE-14P-118-1202718-00

PATIENT
  Sex: Female

DRUGS (3)
  1. METHOTREXATE [Suspect]
     Active Substance: METHOTREXATE
     Indication: PRODUCT USED FOR UNKNOWN INDICATION
     Route: 065
  2. HUMIRA [Suspect]
     Active Substance: ADALIMUMAB
     Indication: PSORIATIC ARTHROPATHY
     Route: 065
     Dates: start: 20131120, end: 201410
  3. HUMIRA [Suspect]
     Active Substance: ADALIMUMAB
     Route: 065
     Dates: start: 2015

REACTIONS (20)
  - Procedural pain [Unknown]
  - Muscle atrophy [Unknown]
  - Pain in extremity [Recovered/Resolved]
  - Joint injury [Unknown]
  - Musculoskeletal discomfort [Unknown]
  - Joint range of motion decreased [Unknown]
  - Condition aggravated [Unknown]
  - Swelling [Unknown]
  - Restless legs syndrome [Unknown]
  - Insomnia [Recovered/Resolved]
  - Muscle spasms [Unknown]
  - Asthenia [Unknown]
  - Fatigue [Unknown]
  - Anxiety [Unknown]
  - Headache [Not Recovered/Not Resolved]
  - Neuralgia [Recovered/Resolved]
  - Energy increased [Unknown]
  - Groin pain [Unknown]
  - Psoriatic arthropathy [Unknown]
  - Unevaluable event [Unknown]

NARRATIVE: CASE EVENT DATE: 2014
